FAERS Safety Report 11032425 (Version 1)
Quarter: 2015Q2

REPORT INFORMATION
  Report Type: Spontaneous
  Country: US (occurrence: None)
  Receive Date: 20150414
  Receipt Date: 20150414
  Transmission Date: 20150821
  Serious: Yes (Hospitalization)
  Sender: FDA-Public Use
  Company Number: 2015BV000004

PATIENT
  Age: 71 Year
  Sex: Female
  Weight: 61.8 kg

DRUGS (10)
  1. PREMARIN (ESTROGEN CONJUGATED) [Concomitant]
  2. OXYCONTIN [Concomitant]
     Active Substance: OXYCODONE HYDROCHLORIDE
  3. IRINOTECAN [Suspect]
     Active Substance: IRINOTECAN
     Indication: COLORECTAL CANCER METASTATIC
     Route: 042
     Dates: start: 20121218, end: 20130116
  4. FOLINIC ACID [Suspect]
     Active Substance: LEUCOVORIN
     Indication: COLORECTAL CANCER METASTATIC
     Route: 042
  5. HYDROCHLOROTHIAZIDE (HYDROCHLOROTHIAZIDE) [Concomitant]
     Active Substance: HYDROCHLOROTHIAZIDE
  6. POTASSIUM (POTASSIUM) [Concomitant]
     Active Substance: POTASSIUM
  7. MULTIVITAMIN [Concomitant]
     Active Substance: VITAMINS
  8. CALCIUM CARBONATE. [Concomitant]
     Active Substance: CALCIUM CARBONATE
  9. PERCOCET (OXYCODONE HYDROCHLORIDE, PARACETAMOL) [Concomitant]
  10. 5-FLUOROURACIL [Suspect]
     Active Substance: FLUOROURACIL
     Indication: COLORECTAL CANCER METASTATIC
     Route: 042

REACTIONS (18)
  - Acute kidney injury [None]
  - Aspartate aminotransferase increased [None]
  - Malignant neoplasm progression [None]
  - Pleural effusion [None]
  - Gamma-glutamyltransferase increased [None]
  - Colon cancer [None]
  - Bacterial test positive [None]
  - Dialysis [None]
  - Streptococcus test positive [None]
  - Blood alkaline phosphatase increased [None]
  - Tumour lysis syndrome [None]
  - Asthenia [None]
  - Cholecystitis [None]
  - Alanine aminotransferase increased [None]
  - Bilirubin conjugated increased [None]
  - Platelet count decreased [None]
  - Peripheral swelling [None]
  - Pyrexia [None]

NARRATIVE: CASE EVENT DATE: 20130124
